FAERS Safety Report 4791189-3 (Version None)
Quarter: 2005Q4

REPORT INFORMATION
  Report Type: 
  Country: None (occurrence: None)
  Receive Date: 20051005
  Receipt Date: 20050913
  Transmission Date: 20060501
  Serious: Yes (Life-Threatening, Hospitalization)
  Sender: FDA-Public Use
  Company Number: 2005RR-00767

PATIENT
  Age: 63 Year
  Sex: Male

DRUGS (1)
  1. ASPIRIN [Suspect]
     Dosage: QD, ORAL
     Route: 048

REACTIONS (5)
  - DUODENAL ULCER HAEMORRHAGE [None]
  - HAEMOGLOBIN DECREASED [None]
  - HELICOBACTER INFECTION [None]
  - HYPOVOLAEMIA [None]
  - MELAENA [None]
